FAERS Safety Report 5907570-2 (Version None)
Quarter: 2008Q4

REPORT INFORMATION
  Report Type: 
  Country: None (occurrence: None)
  Receive Date: 20081002
  Receipt Date: 20081002
  Transmission Date: 20090506
  Serious: Yes (Other)
  Sender: FDA-Public Use
  Company Number: None

PATIENT
  Age: 20 Year
  Sex: Female
  Weight: 68.0396 kg

DRUGS (1)
  1. PROAIR HFA [Suspect]
     Indication: ASTHMA
     Dosage: 90 MCG 2 PUFFS Q4H PRN PO
     Route: 048
     Dates: start: 20080825, end: 20081001

REACTIONS (3)
  - DRUG EFFECT DECREASED [None]
  - DYSPNOEA [None]
  - MEDICAL DEVICE COMPLICATION [None]
